FAERS Safety Report 9289046 (Version 1)
Quarter: 2013Q2

REPORT INFORMATION
  Report Type: Spontaneous
  Country: US (occurrence: US)
  Receive Date: 20130514
  Receipt Date: 20130514
  Transmission Date: 20140414
  Serious: No
  Sender: FDA-Public Use
  Company Number: US-PFIZER INC-2013149012

PATIENT
  Age: 64 Year
  Sex: Female
  Weight: 58.05 kg

DRUGS (5)
  1. LYRICA [Suspect]
     Indication: NEURALGIA
     Dosage: 25 MG, 1X/DAY
     Route: 048
     Dates: start: 20130513
  2. LYRICA [Suspect]
     Indication: PAIN IN EXTREMITY
  3. LYRICA [Suspect]
     Indication: PARKINSON^S DISEASE
  4. TIOTROPIUM [Concomitant]
     Dosage: UNK
  5. AMANTADINE [Concomitant]
     Dosage: 100 MG, 2X/DAY

REACTIONS (3)
  - Off label use [Unknown]
  - Nervousness [Unknown]
  - Tremor [Unknown]
